FAERS Safety Report 17118282 (Version 3)
Quarter: 2023Q4

REPORT INFORMATION
  Report Type: Report from Study
  Country: FR (occurrence: FR)
  Receive Date: 20191205
  Receipt Date: 20231026
  Transmission Date: 20240110
  Serious: Yes (Death, Other)
  Sender: FDA-Public Use
  Company Number: FR-JAZZ-2019-FR-016919

PATIENT

DRUGS (10)
  1. DEFITELIO [Suspect]
     Active Substance: DEFIBROTIDE SODIUM
     Indication: Prophylaxis
     Dosage: UNKNOWN DOSAGE
     Route: 042
     Dates: start: 20190821, end: 20190830
  2. THIOTEPA [Concomitant]
     Active Substance: THIOTEPA
     Indication: Bone marrow conditioning regimen
     Dosage: 10 MILLIGRAM/KILOGRAM, UNK
  3. INOTUZUMAB OZOGAMICIN [Concomitant]
     Active Substance: INOTUZUMAB OZOGAMICIN
     Indication: Chemotherapy
     Dosage: UNK
  4. ETOPOSIDE [Concomitant]
     Active Substance: ETOPOSIDE
     Indication: Bone marrow conditioning regimen
     Dosage: 300 MILLIGRAM/SQ. METER, UNK
  5. CYCLOPHOSPHAMIDE [Concomitant]
     Active Substance: CYCLOPHOSPHAMIDE
     Dosage: 1200 MILLIGRAM/SQ. METER
  6. METHOTREXATE [Concomitant]
     Active Substance: METHOTREXATE
     Indication: Chemotherapy
     Dosage: UNK
  7. FLUDARA [Concomitant]
     Active Substance: FLUDARABINE PHOSPHATE
     Indication: Bone marrow conditioning regimen
     Dosage: 30 MILLIGRAM/SQ. METER, DAY-6, DAY-5, DAY-4, DAY-3 AND DAY-2
  8. BUSULFAN [Concomitant]
     Active Substance: BUSULFAN
     Indication: Bone marrow conditioning regimen
     Dosage: 3.2 MILLIGRAM/KILOGRAM, DAY- AND DAY-4
  9. RIVOTRIL [Concomitant]
     Active Substance: CLONAZEPAM
     Indication: Bone marrow conditioning regimen
     Dosage: 0.03 MILLIGRAM/KILOGRAM
  10. THYMOGLOBULIN [Concomitant]
     Active Substance: LAPINE T-LYMPHOCYTE IMMUNE GLOBULIN
     Indication: Bone marrow conditioning regimen
     Dosage: 2.50 MILLIGRAM/KILOGRAM, DAY-3 AND DAY-2

REACTIONS (3)
  - Brain oedema [Fatal]
  - Non-Hodgkin^s lymphoma [Fatal]
  - Off label use [Unknown]

NARRATIVE: CASE EVENT DATE: 20190821
